FAERS Safety Report 5939125-8 (Version None)
Quarter: 2008Q4

REPORT INFORMATION
  Report Type: 
  Country: None (occurrence: None)
  Receive Date: 20081103
  Receipt Date: 20081030
  Transmission Date: 20090506
  Serious: Yes (Hospitalization)
  Sender: FDA-Public Use
  Company Number: US-BRISTOL-MYERS SQUIBB COMPANY-14390124

PATIENT
  Age: 73 Year
  Sex: Female
  Weight: 82 kg

DRUGS (2)
  1. DASATINIB [Suspect]
     Indication: MALIGNANT MELANOMA
     Route: 048
     Dates: start: 20080410, end: 20080810
  2. DACARBAZINE [Suspect]
     Indication: MALIGNANT MELANOMA
     Dosage: 09APR08-23JUL08. DACARBAZINE 2000MG
     Route: 042
     Dates: start: 20080409

REACTIONS (3)
  - ANAEMIA [None]
  - NEUTROPENIA [None]
  - THROMBOCYTOPENIA [None]
